FAERS Safety Report 11560385 (Version 2)
Quarter: 2015Q4

REPORT INFORMATION
  Report Type: Spontaneous
  Country: US (occurrence: US)
  Receive Date: 20150928
  Receipt Date: 20151106
  Transmission Date: 20160304
  Serious: Yes (Hospitalization)
  Sender: FDA-Public Use
  Company Number: US-PFIZER INC-2015318361

PATIENT
  Age: 39 Year
  Sex: Female

DRUGS (4)
  1. VFEND [Suspect]
     Active Substance: VORICONAZOLE
     Indication: ASPERGILLUS INFECTION
     Dosage: 250 MG, 2X/DAY
     Dates: start: 201307
  2. CARDIZEM [Concomitant]
     Active Substance: DILTIAZEM HYDROCHLORIDE
     Indication: TACHYCARDIA
     Dosage: 240 MG, 1X/DAY
  3. DOXYCYCLINE. [Concomitant]
     Active Substance: DOXYCYCLINE
     Indication: IMMUNE SYSTEM DISORDER
     Dosage: 50 MG, 2X/DAY
  4. WARFARIN [Concomitant]
     Active Substance: WARFARIN
     Indication: PULMONARY EMBOLISM
     Dosage: 5 MG, 1X/DAY

REACTIONS (1)
  - Infection [Not Recovered/Not Resolved]
